FAERS Safety Report 22048648 (Version 3)
Quarter: 2023Q1

REPORT INFORMATION
  Report Type: Report from Study
  Country: BR (occurrence: None)
  Receive Date: 20230301
  Receipt Date: 20230322
  Transmission Date: 20230418
  Serious: Yes (Hospitalization)
  Sender: FDA-Public Use
  Company Number: BR-ROCHE-3295284

PATIENT
  Age: 71 Year
  Sex: Male
  Weight: 133 kg

DRUGS (14)
  1. PERTUZUMAB\TRASTUZUMAB [Suspect]
     Active Substance: PERTUZUMAB\TRASTUZUMAB
     Indication: HER2 positive breast cancer
     Dosage: 1200 MG AND 600 MG?ON 16/FEB/2023, MOST RECENT DOSE OF STUDY DRUG PRIOR TO SAE/AE
     Route: 058
     Dates: start: 20230216
  2. DOCETAXEL [Suspect]
     Active Substance: DOCETAXEL
     Indication: HER2 positive breast cancer
     Dosage: START DATE OF MOST RECENT DOSE OF STUDY DRUG PRIOR TO AE 16/FEB/2023
     Route: 042
     Dates: start: 20230216
  3. CARBOPLATIN [Suspect]
     Active Substance: CARBOPLATIN
     Indication: HER2 positive breast cancer
     Dosage: START DATE OF MOST RECENT DOSE OF STUDY DRUG PRIOR TO AE 16/FEB/2023
     Route: 042
     Dates: start: 20230216
  4. ONDANSETRON [Concomitant]
     Active Substance: ONDANSETRON
     Indication: Prophylaxis
     Route: 042
     Dates: start: 20230216, end: 20230216
  5. DEXAMETHASONE [Concomitant]
     Active Substance: DEXAMETHASONE
     Indication: Prophylaxis
     Route: 042
     Dates: start: 20230216, end: 20230216
  6. DIPHENHYDRAMINE [Concomitant]
     Active Substance: DIPHENHYDRAMINE
     Route: 042
     Dates: start: 20230216, end: 20230216
  7. PEGFILGRASTIM [Concomitant]
     Active Substance: PEGFILGRASTIM
     Route: 058
     Dates: start: 20230217, end: 20230217
  8. METFORMIN [Concomitant]
     Active Substance: METFORMIN HYDROCHLORIDE
     Indication: Diabetes mellitus
     Route: 048
     Dates: start: 201705
  9. OMEPRAZOLE [Concomitant]
     Active Substance: OMEPRAZOLE
     Route: 048
     Dates: start: 201705
  10. INSULIN NOS [Concomitant]
     Active Substance: INSULIN NOS
     Indication: Diabetes mellitus
     Route: 058
     Dates: start: 201705
  11. SIMVASTATIN [Concomitant]
     Active Substance: SIMVASTATIN
     Indication: Diabetes mellitus
     Route: 048
     Dates: start: 201705
  12. DOXAZOSIN [Concomitant]
     Active Substance: DOXAZOSIN MESYLATE
     Indication: Benign prostatic hyperplasia
     Route: 048
     Dates: start: 202004
  13. FERROUS SULFATE [Concomitant]
     Active Substance: FERROUS SULFATE
     Route: 048
     Dates: start: 202201
  14. AMLODIPINE [Concomitant]
     Active Substance: AMLODIPINE BESYLATE
     Indication: Hypertension
     Route: 048
     Dates: start: 201705

REACTIONS (1)
  - Abdominal sepsis [Not Recovered/Not Resolved]

NARRATIVE: CASE EVENT DATE: 20230224
